FAERS Safety Report 18280768 (Version 7)
Quarter: 2022Q4

REPORT INFORMATION
  Report Type: Report from Study
  Country: US (occurrence: US)
  Receive Date: 20200918
  Receipt Date: 20221212
  Transmission Date: 20230112
  Serious: Yes (Hospitalization, Other)
  Sender: FDA-Public Use
  Company Number: US-SHIRE-US202030086

PATIENT
  Age: 71 Year
  Sex: Female
  Weight: 98 kg

DRUGS (4)
  1. VELAGLUCERASE ALFA [Suspect]
     Active Substance: VELAGLUCERASE ALFA
     Indication: Gaucher^s disease
     Dosage: UNK UNK, Q3WEEKS
     Route: 042
     Dates: start: 20100511
  2. VELAGLUCERASE ALFA [Suspect]
     Active Substance: VELAGLUCERASE ALFA
     Dosage: 5200 INTERNATIONAL UNIT, Q2WEEKS
     Route: 042
     Dates: start: 20130111
  3. VELAGLUCERASE ALFA [Suspect]
     Active Substance: VELAGLUCERASE ALFA
     Dosage: 5200 INTERNATIONAL UNIT, EVERY 2 WEEK
     Route: 042
     Dates: start: 20130204
  4. VELAGLUCERASE ALFA [Suspect]
     Active Substance: VELAGLUCERASE ALFA
     Dosage: 5200 INTERNATIONAL UNIT, EVERY 2 WEEK
     Route: 042
     Dates: start: 20201103

REACTIONS (5)
  - Intestinal obstruction [Recovering/Resolving]
  - Incisional hernia [Unknown]
  - Large intestine perforation [Unknown]
  - Bursitis [Unknown]
  - Inappropriate schedule of product administration [Unknown]

NARRATIVE: CASE EVENT DATE: 20200901
